FAERS Safety Report 6409467-0 (Version None)
Quarter: 2009Q4

REPORT INFORMATION
  Report Type: 
  Country: None (occurrence: None)
  Receive Date: 20091019
  Receipt Date: 20091007
  Transmission Date: 20100525
  Serious: Yes (Hospitalization)
  Sender: FDA-Public Use
  Company Number: 232543K09USA

PATIENT
  Age: 42 Year
  Sex: Female

DRUGS (10)
  1. REBIF [Suspect]
     Indication: MULTIPLE SCLEROSIS
     Dosage: 44 MCG, 3 IN 1 WEEKS, SUBCUTANEOUS
     Route: 058
     Dates: start: 20080319
  2. THYROID TAB [Concomitant]
  3. ASPIRIN [Concomitant]
  4. BACLOFEN [Concomitant]
  5. VITAMIN D [Concomitant]
  6. TEGRETOL [Concomitant]
  7. MULTIVITAMINS (MULTIVITAMIN /00831701) [Concomitant]
  8. CALCIUM (CALCIUM-SANDOZ /00009901/) [Concomitant]
  9. WELLBUTRIN XL [Concomitant]
  10. KLONOPIN [Concomitant]

REACTIONS (5)
  - INCISION SITE INFECTION [None]
  - PAIN IN EXTREMITY [None]
  - PATELLA FRACTURE [None]
  - ROAD TRAFFIC ACCIDENT [None]
  - TIBIA FRACTURE [None]
